FAERS Safety Report 22128442 (Version 1)
Quarter: 2023Q1

REPORT INFORMATION
  Report Type: Report from Study
  Country: BR (occurrence: BR)
  Receive Date: 20230323
  Receipt Date: 20230323
  Transmission Date: 20230417
  Serious: Yes (Other)
  Sender: FDA-Public Use
  Company Number: BR-JNJFOC-20220658987

PATIENT
  Sex: Male
  Weight: 50 kg

DRUGS (3)
  1. INFLIXIMAB [Suspect]
     Active Substance: INFLIXIMAB
     Indication: Crohn^s disease
     Route: 041
  2. REMICADE [Suspect]
     Active Substance: INFLIXIMAB
     Indication: Crohn^s disease
     Route: 041
  3. REMICADE [Suspect]
     Active Substance: INFLIXIMAB
     Dosage: EVERY 30 DAYS 3 VIALS-AMPOULE WHOLE
     Route: 041
     Dates: start: 2019

REACTIONS (3)
  - Crohn^s disease [Not Recovered/Not Resolved]
  - Product dose omission issue [Unknown]
  - Off label use [Unknown]

NARRATIVE: CASE EVENT DATE: 20190101
